FAERS Safety Report 11088061 (Version 1)
Quarter: 2015Q2

REPORT INFORMATION
  Report Type: Spontaneous
  Country: US (occurrence: None)
  Receive Date: 20150430
  Receipt Date: 20150430
  Transmission Date: 20150821
  Serious: Yes (Other)
  Sender: FDA-Public Use
  Company Number: 2015AKN00176

PATIENT
  Age: 16 Year
  Sex: Female
  Weight: 61.2 kg

DRUGS (3)
  1. MYORISAN [Suspect]
     Active Substance: ISOTRETINOIN
     Indication: ACNE
     Dosage: 40 MG, 2X/DAY, ORAL
     Route: 048
     Dates: start: 2015, end: 20150324
  2. NORGESTIMATE-ETHYL ESTRADIOL [Concomitant]
  3. STRATTERA (ATOMOXETINE) [Concomitant]

REACTIONS (6)
  - Condition aggravated [None]
  - Attention deficit/hyperactivity disorder [None]
  - Photosensitivity reaction [None]
  - Depression [None]
  - Apathy [None]
  - Dry skin [None]

NARRATIVE: CASE EVENT DATE: 2015
